FAERS Safety Report 25994171 (Version 2)
Quarter: 2025Q4

REPORT INFORMATION
  Report Type: Spontaneous
  Country: US (occurrence: US)
  Receive Date: 20251104
  Receipt Date: 20251117
  Transmission Date: 20260117
  Serious: Yes (Other)
  Sender: PIRAMAL
  Company Number: US-PIRAMAL PHARMA LIMITED-2025-PPL-000609

PATIENT

DRUGS (1)
  1. GABLOFEN [Suspect]
     Active Substance: BACLOFEN
     Indication: Product used for unknown indication
     Dosage: 744 MICROGRAM, QD
     Route: 037

REACTIONS (1)
  - Implant site infection [Recovered/Resolved]
